FAERS Safety Report 19283499 (Version 1)
Quarter: 2021Q2

REPORT INFORMATION
  Report Type: Spontaneous
  Country: US (occurrence: US)
  Receive Date: 20210521
  Receipt Date: 20210521
  Transmission Date: 20210717
  Serious: Yes (Hospitalization)
  Sender: FDA-Public Use
  Company Number: None

PATIENT
  Age: 50 Year
  Sex: Female
  Weight: 80 kg

DRUGS (6)
  1. ONDANSETRON HCL (ZOFRAN) [Suspect]
     Active Substance: ONDANSETRON HYDROCHLORIDE
     Dates: end: 20210310
  2. OLANZAPINE. [Suspect]
     Active Substance: OLANZAPINE
     Dates: end: 20210313
  3. PACLITAXEL. [Concomitant]
     Active Substance: PACLITAXEL
  4. FAMOTIDINE. [Concomitant]
     Active Substance: FAMOTIDINE
  5. DEXAMETHASONE. [Suspect]
     Active Substance: DEXAMETHASONE
     Dates: end: 20210313
  6. DIPHENHYDRAMINE. [Concomitant]
     Active Substance: DIPHENHYDRAMINE

REACTIONS (3)
  - Supraventricular tachycardia [None]
  - Ventricular extrasystoles [None]
  - Palpitations [None]

NARRATIVE: CASE EVENT DATE: 20210328
